FAERS Safety Report 14869522 (Version 2)
Quarter: 2020Q3

REPORT INFORMATION
  Report Type: Report from Study
  Country: US (occurrence: US)
  Receive Date: 20180509
  Receipt Date: 20180516
  Transmission Date: 20201105
  Serious: Yes (Life-Threatening, Hospitalization)
  Sender: FDA-Public Use
  Company Number: US-JNJFOC-20180433245

PATIENT
  Age: 51 Year
  Sex: Female
  Weight: 56.7 kg

DRUGS (23)
  1. CISPLATIN. [Suspect]
     Active Substance: CISPLATIN
     Indication: PLASMA CELL MYELOMA
     Route: 042
     Dates: start: 20180419, end: 20180421
  2. XANAX [Concomitant]
     Active Substance: ALPRAZOLAM
     Route: 065
  3. DIPHENHYDRAMINE. [Concomitant]
     Active Substance: DIPHENHYDRAMINE
     Route: 065
     Dates: start: 20180418, end: 20180418
  4. ACETAMINOPHEN. [Concomitant]
     Active Substance: ACETAMINOPHEN
     Route: 065
     Dates: start: 20180418, end: 20180418
  5. DARATUMUMAB [Suspect]
     Active Substance: DARATUMUMAB
     Route: 065
  6. DARATUMUMAB [Suspect]
     Active Substance: DARATUMUMAB
     Indication: PLASMA CELL MYELOMA
     Route: 065
     Dates: start: 20180418
  7. THALIDOMIDE [Suspect]
     Active Substance: THALIDOMIDE
     Indication: PLASMA CELL MYELOMA
     Route: 048
     Dates: start: 20180419, end: 20180421
  8. DEXAMETHASONE. [Suspect]
     Active Substance: DEXAMETHASONE
     Indication: PLASMA CELL MYELOMA
     Route: 048
     Dates: start: 20180419, end: 20180421
  9. MONTELUKAST [Concomitant]
     Active Substance: MONTELUKAST SODIUM
     Route: 065
     Dates: start: 20180418, end: 20180418
  10. FOSAPREPITANT [Concomitant]
     Active Substance: FOSAPREPITANT
     Route: 065
     Dates: start: 20180419, end: 20180419
  11. CYCLOPHOSPHAMIDE. [Suspect]
     Active Substance: CYCLOPHOSPHAMIDE
     Indication: PLASMA CELL MYELOMA
     Route: 042
     Dates: start: 20180419, end: 20180421
  12. ZYLOPRIM [Concomitant]
     Active Substance: ALLOPURINOL
     Route: 065
  13. LEXAPRO [Concomitant]
     Active Substance: ESCITALOPRAM OXALATE
     Route: 065
  14. FEXOFENADINE [Concomitant]
     Active Substance: FEXOFENADINE HYDROCHLORIDE
     Route: 065
  15. CALCIUM GLUCONATE. [Concomitant]
     Active Substance: CALCIUM GLUCONATE
     Route: 065
     Dates: start: 20180421, end: 20180421
  16. ETOPOSIDE. [Suspect]
     Active Substance: ETOPOSIDE
     Indication: PLASMA CELL MYELOMA
     Route: 042
     Dates: start: 20180410, end: 20180421
  17. LOVENOX [Concomitant]
     Active Substance: ENOXAPARIN SODIUM
     Route: 065
     Dates: end: 20180422
  18. MEPERIDINE HCL [Concomitant]
     Active Substance: MEPERIDINE HYDROCHLORIDE
     Route: 065
     Dates: start: 20180418, end: 20180418
  19. CARFILZOMIB [Suspect]
     Active Substance: CARFILZOMIB
     Indication: PLASMA CELL MYELOMA
     Route: 042
     Dates: start: 20180419, end: 20180421
  20. ADRIAMYCIN [Suspect]
     Active Substance: DOXORUBICIN HYDROCHLORIDE
     Indication: PLASMA CELL MYELOMA
     Route: 042
     Dates: start: 20180419, end: 20180421
  21. MORPHINE [Concomitant]
     Active Substance: MORPHINE
     Route: 065
     Dates: start: 20180418, end: 20180418
  22. FUROSEMIDE. [Concomitant]
     Active Substance: FUROSEMIDE
     Route: 065
     Dates: start: 20180421, end: 20180421
  23. FUROSEMIDE. [Concomitant]
     Active Substance: FUROSEMIDE
     Route: 065
     Dates: start: 20180421, end: 20180421

REACTIONS (1)
  - Acute respiratory failure [Recovering/Resolving]

NARRATIVE: CASE EVENT DATE: 20180422
